FAERS Safety Report 21478463 (Version 2)
Quarter: 2022Q4

REPORT INFORMATION
  Report Type: Report from Study
  Country: FR (occurrence: FR)
  Receive Date: 20221019
  Receipt Date: 20221019
  Transmission Date: 20230112
  Serious: Yes (Hospitalization)
  Sender: FDA-Public Use
  Company Number: FR-ELI_LILLY_AND_COMPANY-FR202208015218

PATIENT
  Age: 68 Year
  Sex: Male
  Weight: 83.4 kg

DRUGS (18)
  1. SELPERCATINIB [Suspect]
     Active Substance: SELPERCATINIB
     Indication: Non-small cell lung cancer
     Dosage: 160 MG, BID
     Route: 048
     Dates: start: 20220817, end: 20220828
  2. SELPERCATINIB [Suspect]
     Active Substance: SELPERCATINIB
     Dosage: 40 MG, BID
     Route: 048
     Dates: start: 20220921, end: 20221005
  3. SELPERCATINIB [Suspect]
     Active Substance: SELPERCATINIB
     Dosage: 80 MG, BID
     Route: 048
     Dates: start: 20221006, end: 20221012
  4. SELPERCATINIB [Suspect]
     Active Substance: SELPERCATINIB
     Dosage: 120 MG, BID
     Route: 048
     Dates: start: 20221013
  5. CISPLATIN [Suspect]
     Active Substance: CISPLATIN
     Indication: Non-small cell lung cancer
     Dosage: 144.75 MG, CYCLICAL
     Route: 042
     Dates: start: 20210901
  6. CISPLATIN [Suspect]
     Active Substance: CISPLATIN
     Dosage: 145.5 MG, CYCLICAL
     Route: 042
     Dates: start: 20211020, end: 20211020
  7. CARBOPLATIN [Suspect]
     Active Substance: CARBOPLATIN
     Indication: Non-small cell lung cancer
     Dosage: 438.82 MG, SINGLE
     Route: 042
     Dates: start: 20211110, end: 20211110
  8. PEMETREXED [Suspect]
     Active Substance: PEMETREXED
     Indication: Non-small cell lung cancer
     Dosage: 965 MG, CYCLICAL
     Route: 042
     Dates: start: 20210901
  9. PEMETREXED [Suspect]
     Active Substance: PEMETREXED
     Dosage: 970 MG, CYCLICAL
     Route: 042
     Dates: start: 20211020
  10. PEMETREXED [Suspect]
     Active Substance: PEMETREXED
     Dosage: 975 MG, CYCLICAL
     Route: 042
     Dates: start: 20211110
  11. PEMETREXED [Suspect]
     Active Substance: PEMETREXED
     Dosage: 970 MG, CYCLICAL
     Route: 042
     Dates: start: 20211201, end: 20211201
  12. PEMETREXED [Suspect]
     Active Substance: PEMETREXED
     Dosage: 975 MG, CYCLICAL
     Route: 042
     Dates: start: 20211223, end: 20220112
  13. PEMBROLIZUMAB [Suspect]
     Active Substance: PEMBROLIZUMAB
     Indication: Non-small cell lung cancer
     Dosage: 200 MG, CYCLICAL
     Route: 042
     Dates: start: 20210901, end: 20220727
  14. HERBALS\SAW PALMETTO [Concomitant]
     Active Substance: HERBALS\SAW PALMETTO
     Indication: Benign prostatic hyperplasia
     Dosage: UNK
     Dates: start: 2019
  15. ELIQUIS [Concomitant]
     Active Substance: APIXABAN
     Indication: Oedema peripheral
     Dosage: UNK, UNKNOWN
     Route: 065
     Dates: start: 20220324, end: 20220828
  16. NASACORT [Concomitant]
     Active Substance: TRIAMCINOLONE ACETONIDE
     Indication: Rhinitis
     Dosage: 1 PUFF, BID
     Route: 045
     Dates: start: 20220601, end: 20220921
  17. LERCANIDIPINE [Concomitant]
     Active Substance: LERCANIDIPINE
     Indication: Hypertension
     Dosage: UNK, UNKNOWN
     Route: 065
     Dates: start: 20220824
  18. AUGMENTIN [Concomitant]
     Active Substance: AMOXICILLIN\CLAVULANATE POTASSIUM
     Indication: Prophylaxis
     Dosage: UNK
     Dates: start: 20220826, end: 20220831

REACTIONS (1)
  - Drug reaction with eosinophilia and systemic symptoms [Recovered/Resolved]

NARRATIVE: CASE EVENT DATE: 20220829
